FAERS Safety Report 25123914 (Version 1)
Quarter: 2025Q1

REPORT INFORMATION
  Report Type: Spontaneous
  Country: US (occurrence: US)
  Receive Date: 20250326
  Receipt Date: 20250326
  Transmission Date: 20250409
  Serious: No
  Sender: Unknown Manufacturer
  Company Number: US-MELINTA THERAPEUTICS, LLC-US-MLNT-24-00569

PATIENT
  Age: 76 Year
  Sex: Female
  Weight: 56.8 kg

DRUGS (3)
  1. METOPROLOL SUCCINATE [Suspect]
     Active Substance: METOPROLOL SUCCINATE
     Indication: Hypertension
     Dosage: 200 MILLIGRAM, QD
     Route: 048
     Dates: start: 20190501, end: 20240928
  2. AMLODIPINE [Concomitant]
     Active Substance: AMLODIPINE BESYLATE
     Indication: Hypertension
     Dosage: 10 MILLIGRAM, QD
     Dates: start: 20231214, end: 20240928
  3. ACYCLOVIR [Concomitant]
     Active Substance: ACYCLOVIR
     Indication: Antiviral prophylaxis
     Dosage: 400 MILLIGRAM, QD
     Route: 048
     Dates: start: 20220503

REACTIONS (6)
  - Blood cholesterol increased [Unknown]
  - Back pain [Unknown]
  - Dyspepsia [Unknown]
  - Nausea [Unknown]
  - Diarrhoea [Unknown]
  - Insomnia [Unknown]

NARRATIVE: CASE EVENT DATE: 20190601
